FAERS Safety Report 16599171 (Version 3)
Quarter: 2019Q4

REPORT INFORMATION
  Report Type: Spontaneous
  Country: US (occurrence: US)
  Receive Date: 20190719
  Receipt Date: 20191023
  Transmission Date: 20200122
  Serious: Yes (Hospitalization, Other)
  Sender: FDA-Public Use
  Company Number: US-PFIZER INC-2019306254

PATIENT
  Age: 46 Year
  Sex: Female

DRUGS (3)
  1. XELJANZ [Suspect]
     Active Substance: TOFACITINIB CITRATE
     Dosage: 5 MG, UNK
     Dates: start: 20190115
  2. LEFLUNOMIDE. [Interacting]
     Active Substance: LEFLUNOMIDE
     Dosage: UNK
  3. XELJANZ [Interacting]
     Active Substance: TOFACITINIB CITRATE
     Dosage: 5 MG, UNK
     Dates: start: 20190715

REACTIONS (7)
  - Blister [Unknown]
  - Drug interaction [Unknown]
  - Herpes zoster [Unknown]
  - Weight increased [Unknown]
  - Myalgia [Unknown]
  - Multiple sclerosis [Unknown]
  - Muscle spasms [Unknown]

NARRATIVE: CASE EVENT DATE: 2019
